FAERS Safety Report 11921484 (Version 2)
Quarter: 2017Q2

REPORT INFORMATION
  Report Type: Spontaneous
  Country: GB (occurrence: GB)
  Receive Date: 20160115
  Receipt Date: 20170428
  Transmission Date: 20170829
  Serious: Yes (Other)
  Sender: FDA-Public Use
  Company Number: GB-GILEAD-2016-0192061

PATIENT
  Age: 80 Year
  Sex: Female

DRUGS (2)
  1. RANOLAZINE. [Suspect]
     Active Substance: RANOLAZINE
     Indication: ANGINA PECTORIS
     Route: 065
  2. NICORANDIL [Concomitant]
     Active Substance: NICORANDIL

REACTIONS (4)
  - Left ventricular failure [Unknown]
  - Hypotonia [Unknown]
  - Vasodilatation [Unknown]
  - Feeling abnormal [Unknown]
